FAERS Safety Report 5268000-X (Version None)
Quarter: 2007Q1

REPORT INFORMATION
  Report Type: 
  Country: None (occurrence: None)
  Receive Date: 20061213
  Receipt Date: 20040722
  Transmission Date: 20070707
  Serious: Yes (Other)
  Sender: FDA-Public Use
  Company Number: 2004UW15430

PATIENT
  Age: 66 Year
  Sex: Female
  Weight: 56.6996 kg

DRUGS (1)
  1. IRESSA [Suspect]
     Dosage: 250 MG PO
     Route: 048
     Dates: start: 20040611

REACTIONS (2)
  - ASTHENOPIA [None]
  - VISUAL ACUITY REDUCED [None]
